FAERS Safety Report 13609184 (Version 2)
Quarter: 2017Q2

REPORT INFORMATION
  Report Type: Report from Study
  Country: JP (occurrence: JP)
  Receive Date: 20170602
  Receipt Date: 20170629
  Transmission Date: 20170830
  Serious: Yes (Death, Life-Threatening, Hospitalization, Other)
  Sender: FDA-Public Use
  Company Number: JP-BRISTOL-MYERS SQUIBB COMPANY-BMS-2017-048228

PATIENT
  Age: 82 Year
  Sex: Male

DRUGS (1)
  1. NIVOLUMAB [Suspect]
     Active Substance: NIVOLUMAB
     Indication: HEAD AND NECK CANCER METASTATIC
     Dosage: 120 MG, QD
     Route: 041
     Dates: start: 20170517

REACTIONS (2)
  - Pneumonia aspiration [Fatal]
  - Malignant neoplasm progression [Unknown]

NARRATIVE: CASE EVENT DATE: 20170519
